FAERS Safety Report 16178462 (Version 1)
Quarter: 2019Q2

REPORT INFORMATION
  Report Type: Spontaneous
  Country: DE (occurrence: DE)
  Receive Date: 20190410
  Receipt Date: 20190410
  Transmission Date: 20190711
  Serious: Yes (Hospitalization)
  Sender: FDA-Public Use
  Company Number: DE-AUROBINDO-AUR-APL-2019-017166

PATIENT

DRUGS (8)
  1. TAMOXIFEN [Concomitant]
     Active Substance: TAMOXIFEN
     Dosage: 1 DOSAGE FORM, DAILY (1X1)
     Route: 048
     Dates: end: 201812
  2. PANTOPRAZOLE [Concomitant]
     Active Substance: PANTOPRAZOLE
     Indication: PROPHYLAXIS
     Dosage: 1 DOSAGE FORM, DAILY (1X1)
     Route: 048
     Dates: start: 201707, end: 201805
  3. BISOPROLOL [Concomitant]
     Active Substance: BISOPROLOL
     Indication: ATRIAL FIBRILLATION
     Dosage: 1 DOSAGE FORM, TWO TIMES A DAY (2X1)
     Route: 048
     Dates: start: 201706, end: 201710
  4. FLECAINIDE PUREN 100 MG TABLETS [Suspect]
     Active Substance: FLECAINIDE
     Indication: ATRIAL FIBRILLATION
     Dosage: 1 DOSAGE FORM, 3 TIMES A DAY (3X1)
     Route: 048
     Dates: start: 201707
  5. FLECAINIDE PUREN 100 MG TABLETS [Suspect]
     Active Substance: FLECAINIDE
     Dosage: 1 DOSAGE FORM, TWO TIMES A DAY (2X1)
     Route: 048
     Dates: start: 201710
  6. METOPROLOL. [Concomitant]
     Active Substance: METOPROLOL
     Indication: ATRIAL FIBRILLATION
     Dosage: 1 DOSAGE FORM, TWO TIMES A DAY (2X1 RUNNING)
     Route: 048
     Dates: start: 201710
  7. TAMOXIFEN [Concomitant]
     Active Substance: TAMOXIFEN
     Indication: BREAST CANCER
     Dosage: 1 DOSAGE FORM, DAILY (1X1)
     Route: 048
     Dates: start: 201707, end: 201712
  8. LIXIANA [Concomitant]
     Active Substance: EDOXABAN TOSYLATE
     Indication: ATRIAL FIBRILLATION
     Dosage: 1 DOSAGE FORM, ONCE A DAY (1X1 RUNNING)
     Route: 048
     Dates: start: 201706

REACTIONS (4)
  - Oropharyngeal discomfort [Recovered/Resolved]
  - Cough [Recovered/Resolved]
  - Back pain [Recovered/Resolved]
  - Chest pain [Recovered/Resolved]

NARRATIVE: CASE EVENT DATE: 201707
